FAERS Safety Report 16349315 (Version 1)
Quarter: 2019Q2

REPORT INFORMATION
  Report Type: Report from Study
  Country: PL (occurrence: PL)
  Receive Date: 20190523
  Receipt Date: 20190523
  Transmission Date: 20190711
  Serious: Yes (Other)
  Sender: FDA-Public Use
  Company Number: PL-MYLANLABS-2019M1048697

PATIENT
  Age: 54 Year
  Sex: Female

DRUGS (7)
  1. DASABUVIR [Interacting]
     Active Substance: DASABUVIR
     Indication: AUTOIMMUNE HEPATITIS
  2. BUDESONIDE. [Suspect]
     Active Substance: BUDESONIDE
     Indication: IMMUNOSUPPRESSANT DRUG THERAPY
     Dosage: BEFORE DIRECT-ACTING ANTIVIRAL THERAPY
     Route: 065
     Dates: start: 2011
  3. OMBITASVIR W/PARITAPREVIR/RITONAVIR [Interacting]
     Active Substance: OMBITASVIR\PARITAPREVIR\RITONAVIR
     Indication: AUTOIMMUNE HEPATITIS
  4. AZATHIOPRINE. [Concomitant]
     Active Substance: AZATHIOPRINE
     Indication: IMMUNOSUPPRESSANT DRUG THERAPY
     Route: 065
     Dates: start: 2011
  5. DASABUVIR [Interacting]
     Active Substance: DASABUVIR
     Indication: HEPATITIS C
     Dosage: IN 2 DIVIDED DOSES; THERAPY SCHEDULED FOR 12 WEEKS
     Route: 065
  6. BUDESONIDE. [Interacting]
     Active Substance: BUDESONIDE
     Dosage: AT BASELINE
     Route: 065
  7. OMBITASVIR W/PARITAPREVIR/RITONAVIR [Interacting]
     Active Substance: OMBITASVIR\PARITAPREVIR\RITONAVIR
     Indication: HEPATITIS C
     Dosage: THERAPY SCHEDULED FOR 12 WEEKS
     Route: 065

REACTIONS (2)
  - Drug interaction [Recovering/Resolving]
  - Cushing^s syndrome [Recovering/Resolving]
